FAERS Safety Report 16400040 (Version 2)
Quarter: 2019Q4

REPORT INFORMATION
  Report Type: Spontaneous
  Country: US (occurrence: US)
  Receive Date: 20190606
  Receipt Date: 20191022
  Transmission Date: 20200122
  Serious: Yes (Other)
  Sender: FDA-Public Use
  Company Number: US-ALLERGAN-1902428US

PATIENT
  Sex: Male

DRUGS (2)
  1. KYBELLA [Suspect]
     Active Substance: DEOXYCHOLIC ACID
     Dosage: UNK
     Dates: start: 20180319, end: 20180319
  2. KYBELLA [Suspect]
     Active Substance: DEOXYCHOLIC ACID
     Indication: PRODUCT USED FOR UNKNOWN INDICATION
     Dosage: ACTUAL: TWO 4CC VIALS
     Route: 058
     Dates: start: 20180430, end: 20180430

REACTIONS (2)
  - Soft tissue mass [Unknown]
  - Drug ineffective [Unknown]
